FAERS Safety Report 5005209-4 (Version None)
Quarter: 2006Q2

REPORT INFORMATION
  Report Type: 
  Country: None (occurrence: None)
  Receive Date: 20060512
  Receipt Date: 20060509
  Transmission Date: 20061013
  Serious: Yes (Life-Threatening, Hospitalization, Other)
  Sender: FDA-Public Use
  Company Number: HQWYE817920MAY05

PATIENT
  Age: 75 Year
  Sex: Female
  Weight: 49.49 kg

DRUGS (11)
  1. TEMSIROLIMUS (TEMSIROLIMUS) [Suspect]
     Indication: BREAST CANCER METASTATIC
     Dosage: 30 MG ONCE DAILY; DAYS 1 -5 (14 DAY CYCLE), ORAL
     Route: 048
     Dates: start: 20050328, end: 20050514
  2. LETROZOLE [Suspect]
     Indication: BREAST CANCER METASTATIC
     Dosage: 2.5 MG 1X PER 1 DAY, ORAL
     Route: 048
     Dates: start: 20050328, end: 20050514
  3. SYNTHROID [Concomitant]
  4. ZOCOR [Concomitant]
  5. LISINOPRIL [Concomitant]
  6. METOPROLOL SUCCINATE [Concomitant]
  7. PRANDIN [Concomitant]
  8. NORVASC [Concomitant]
  9. ASPIRIN [Concomitant]
  10. ACETAMINOPHEN [Concomitant]
  11. COLACE (DOCUSATE SODIUM) [Concomitant]

REACTIONS (1)
  - ANGIONEUROTIC OEDEMA [None]
